FAERS Safety Report 11598772 (Version 1)
Quarter: 2015Q3

REPORT INFORMATION
  Report Type: Spontaneous
  Country: US (occurrence: US)
  Receive Date: 20150916
  Receipt Date: 20150916
  Transmission Date: 20151125
  Serious: No
  Sender: FDA-Public Use
  Company Number: US-ELI_LILLY_AND_COMPANY-US200712000856

PATIENT
  Age: 82 Year
  Sex: Male

DRUGS (3)
  1. CALCIUM W/VITAMIN D NOS [Concomitant]
     Active Substance: CALCIUM\VITAMIN D
     Dosage: UNK, DAILY (1/D)
  2. VITAMIN D [Concomitant]
     Active Substance: CHOLECALCIFEROL
  3. FORTEO [Suspect]
     Active Substance: TERIPARATIDE
     Dates: start: 200612

REACTIONS (2)
  - Drug ineffective [Not Recovered/Not Resolved]
  - Physical examination abnormal [Not Recovered/Not Resolved]

NARRATIVE: CASE EVENT DATE: 200711
